FAERS Safety Report 4920044-0 (Version None)
Quarter: 2006Q1

REPORT INFORMATION
  Report Type: 
  Country: None (occurrence: None)
  Receive Date: 20060223
  Receipt Date: 20060111
  Transmission Date: 20060701
  Serious: Yes (Death, Hospitalization)
  Sender: FDA-Public Use
  Company Number: CA-AMGEN-US164697

PATIENT
  Sex: Female

DRUGS (6)
  1. ENBREL [Suspect]
     Indication: RHEUMATOID ARTHRITIS
     Route: 058
     Dates: start: 20051223, end: 20051223
  2. FOSAMAX [Concomitant]
  3. GABAPENTIN [Concomitant]
  4. PREDNISONE [Concomitant]
  5. ATENOLOL [Concomitant]
  6. VASOTEC RPD [Concomitant]

REACTIONS (1)
  - CEREBROVASCULAR ACCIDENT [None]
